FAERS Safety Report 20870152 (Version 1)
Quarter: 2022Q2

REPORT INFORMATION
  Report Type: Report from Study
  Country: BR (occurrence: BR)
  Receive Date: 20220525
  Receipt Date: 20220525
  Transmission Date: 20220720
  Serious: Yes (Hospitalization, Other)
  Sender: FDA-Public Use
  Company Number: BR-ABBVIE-22K-020-4405268-00

PATIENT
  Age: 29 Year
  Sex: Female
  Weight: 45.5 kg

DRUGS (1)
  1. HUMIRA [Suspect]
     Active Substance: ADALIMUMAB
     Indication: Crohn^s disease
     Route: 058
     Dates: start: 202107, end: 202108

REACTIONS (7)
  - Hepatic cancer [Not Recovered/Not Resolved]
  - Cholecystitis [Recovered/Resolved]
  - Cholangitis [Unknown]
  - Jaundice [Recovering/Resolving]
  - Pruritus [Recovering/Resolving]
  - Chromaturia [Recovering/Resolving]
  - Swelling [Unknown]

NARRATIVE: CASE EVENT DATE: 20210901
